FAERS Safety Report 15766964 (Version 5)
Quarter: 2019Q2

REPORT INFORMATION
  Report Type: Report from Study
  Country: DE (occurrence: DE)
  Receive Date: 20181227
  Receipt Date: 20190402
  Transmission Date: 20190711
  Serious: Yes (Hospitalization, Other)
  Sender: FDA-Public Use
  Company Number: DE-TAKEDA-2018TUS035170

PATIENT
  Age: 65 Year
  Sex: Female

DRUGS (18)
  1. FERRO-SANOL DUODENAL [Concomitant]
     Active Substance: FERROUS GLYCINE SULFATE
     Dosage: 100 MG, QD
     Route: 048
  2. MORPHINE SULFATE. [Concomitant]
     Active Substance: MORPHINE SULFATE
     Dosage: 10 MILLIGRAM, QD
     Route: 048
  3. METAMIZOLE [Concomitant]
     Active Substance: METAMIZOLE
     Dosage: 2000 MG, QD
     Route: 048
  4. BRIGATINIB [Suspect]
     Active Substance: BRIGATINIB
     Indication: NON-SMALL CELL LUNG CANCER
     Dosage: 180 MILLIGRAM, QD
     Route: 048
     Dates: start: 201811
  5. XARELTO [Concomitant]
     Active Substance: RIVAROXABAN
     Dosage: 15 MG, QD
     Route: 048
  6. METOCLOPRAMIDE. [Concomitant]
     Active Substance: METOCLOPRAMIDE
     Dosage: 20 MG, QD
     Route: 048
     Dates: start: 20181214
  7. CALCILAC                           /00944201/ [Concomitant]
     Dosage: UNK UNK, QD
     Route: 048
  8. VITAMIN B12 [Concomitant]
     Active Substance: CYANOCOBALAMIN
     Indication: PROPHYLAXIS
     Dosage: 1000 UG, UNK
     Route: 058
     Dates: start: 20181214, end: 20181214
  9. FOLSAN [Concomitant]
     Active Substance: FOLIC ACID
     Indication: PROPHYLAXIS
     Dosage: 5 MG, QD
     Route: 048
     Dates: start: 20181214, end: 20181214
  10. TILIDINE [Concomitant]
     Active Substance: TILIDINE
     Dosage: 100 MG, QD
     Route: 048
  11. CALCILAC                           /00944201/ [Concomitant]
     Dosage: UNK UNK, QD
     Route: 048
  12. MORPHINE SULFATE. [Concomitant]
     Active Substance: MORPHINE SULFATE
     Indication: PAIN
     Dosage: 20 MG, QD
     Route: 048
     Dates: end: 20181215
  13. KALINOR RETARD P [Concomitant]
     Active Substance: POTASSIUM CHLORIDE
     Dosage: 1200 MG, QD
     Route: 048
  14. SEVREDOL [Concomitant]
     Active Substance: MORPHINE
     Dosage: 10 MG, QD
     Route: 048
  15. L-THYROX [Concomitant]
     Active Substance: LEVOTHYROXINE SODIUM
     Dosage: 100 UG, QD
     Route: 048
  16. FUROSEMIDE. [Concomitant]
     Active Substance: FUROSEMIDE
     Dosage: 40 MG, QD
     Route: 048
  17. CALCILAC                           /00944201/ [Concomitant]
     Dosage: UNK UNK, QD
     Route: 048
  18. FOLSAN [Concomitant]
     Active Substance: FOLIC ACID
     Dosage: 0.4 UNK
     Route: 048
     Dates: start: 20181215

REACTIONS (7)
  - Therapy non-responder [Unknown]
  - General physical health deterioration [Recovered/Resolved with Sequelae]
  - Blood alkaline phosphatase increased [Not Recovered/Not Resolved]
  - Aspartate aminotransferase increased [Not Recovered/Not Resolved]
  - Dyspnoea [Recovered/Resolved with Sequelae]
  - Gamma-glutamyltransferase increased [Not Recovered/Not Resolved]
  - Neoplasm progression [Unknown]

NARRATIVE: CASE EVENT DATE: 20181128
